FAERS Safety Report 9801915 (Version 1)
Quarter: 2014Q1

REPORT INFORMATION
  Report Type: Spontaneous
  Country: US (occurrence: US)
  Receive Date: 20140107
  Receipt Date: 20140107
  Transmission Date: 20141002
  Serious: No
  Sender: FDA-Public Use
  Company Number: US-ALLERGAN-1314584US

PATIENT
  Age: 20 Year
  Sex: Female

DRUGS (3)
  1. ACZONE [Suspect]
     Indication: ACNE
  2. RETIN A [Suspect]
     Indication: ACNE
  3. EPIDUO [Concomitant]
     Indication: ACNE
     Dosage: UNK, TWICE A DAY
     Route: 061
     Dates: start: 201212, end: 201304

REACTIONS (1)
  - Drug ineffective [Unknown]
